FAERS Safety Report 9354838 (Version 1)
Quarter: 2013Q2

REPORT INFORMATION
  Report Type: Spontaneous
  Country: US (occurrence: None)
  Receive Date: 20130618
  Receipt Date: 20130618
  Transmission Date: 20140414
  Serious: Yes (Death)
  Sender: FDA-Public Use
  Company Number: None

PATIENT
  Age: 68 Year
  Sex: Male

DRUGS (2)
  1. XTANDI [Suspect]
     Indication: PROSTATE CANCER
     Route: 048
     Dates: start: 20130608
  2. PAPAVERINE/PHENTOLAMINE/PGEI 17.6MG/0.65MG/5.9 MCG COMPOUND [Suspect]
     Dosage: ^AS DIRECTED^ INJECT
     Dates: start: 20100513

REACTIONS (1)
  - Death [None]
